FAERS Safety Report 6444254-9 (Version None)
Quarter: 2009Q4

REPORT INFORMATION
  Report Type: 
  Country: None (occurrence: None)
  Receive Date: 20091116
  Receipt Date: 20091116
  Transmission Date: 20100525
  Serious: No
  Sender: FDA-Public Use
  Company Number: None

PATIENT

DRUGS (1)
  1. STAHIST [Suspect]

REACTIONS (4)
  - BLOOD PRESSURE DIASTOLIC DECREASED [None]
  - CEREBROVASCULAR ACCIDENT [None]
  - GLAUCOMA [None]
  - INTRAOCULAR LENS IMPLANT [None]
